FAERS Safety Report 7453378-9 (Version None)
Quarter: 2011Q2

REPORT INFORMATION
  Report Type: 
  Country: None (occurrence: None)
  Receive Date: 20110502
  Receipt Date: 20110428
  Transmission Date: 20111010
  Serious: Yes (Other)
  Sender: FDA-Public Use
  Company Number: CHPA2011US06081

PATIENT
  Age: 59 Year
  Sex: Female

DRUGS (1)
  1. CRUEX PRESCRIPTION STRENGTH SPRAY POWDER [Suspect]
     Dosage: SPRAYED HER FEET ONCE
     Route: 061
     Dates: start: 20110428, end: 20110428

REACTIONS (2)
  - TREMOR [None]
  - HYPOKINESIA [None]
